FAERS Safety Report 5205413-6 (Version None)
Quarter: 2006Q4

REPORT INFORMATION
  Report Type: 
  Country: None (occurrence: None)
  Receive Date: 20061027
  Receipt Date: 20060710
  Transmission Date: 20070319
  Serious: No
  Sender: FDA-Public Use
  Company Number: 200519508US

PATIENT
  Age: 35 Year
  Sex: Female

DRUGS (4)
  1. KETEK [Suspect]
     Indication: BRONCHITIS
     Dosage: 800 MG QD PO
     Route: 048
     Dates: start: 20051104
  2. KETEK [Suspect]
     Indication: SINUSITIS
     Dosage: 800 MG QD PO
     Route: 048
     Dates: start: 20051104
  3. TUSSIONEX [Concomitant]
  4. NABUMETONE [Concomitant]

REACTIONS (2)
  - PRURITUS [None]
  - RASH MACULAR [None]
